FAERS Safety Report 5945755-X (Version None)
Quarter: 2008Q4

REPORT INFORMATION
  Report Type: 
  Country: None (occurrence: None)
  Receive Date: 20081106
  Receipt Date: 20081023
  Transmission Date: 20090506
  Serious: Yes (Hospitalization)
  Sender: FDA-Public Use
  Company Number: 2008BI027625

PATIENT
  Age: 51 Year
  Sex: Male

DRUGS (15)
  1. TYSABRI [Suspect]
     Indication: MULTIPLE SCLEROSIS
     Dosage: 300 MG; QM; IV
     Route: 042
     Dates: start: 20070411
  2. LEXAPRO [Concomitant]
  3. METOPROLOL TARTRATE [Concomitant]
  4. TRIAMTERENE [Concomitant]
  5. LIPITOR [Concomitant]
  6. KEPPRA [Concomitant]
  7. ASPIRIN [Concomitant]
  8. MULTI-VITAMIN [Concomitant]
  9. FIBER CON [Concomitant]
  10. WARFARIN SODIUM [Concomitant]
  11. AMBIEN [Concomitant]
  12. HYDROCODONE [Concomitant]
  13. AMIODARONE HCL [Concomitant]
  14. BACLOFEN [Concomitant]
  15. IMDUR [Concomitant]

REACTIONS (9)
  - ANGINA PECTORIS [None]
  - ATRIAL FIBRILLATION [None]
  - CORONARY ARTERY OCCLUSION [None]
  - DIZZINESS [None]
  - DYSPNOEA [None]
  - FATIGUE [None]
  - MYOCARDIAL ISCHAEMIA [None]
  - PALPITATIONS [None]
  - SINUS BRADYCARDIA [None]
